FAERS Safety Report 7899834-0 (Version None)
Quarter: 2011Q4

REPORT INFORMATION
  Report Type: 
  Country: None (occurrence: None)
  Receive Date: 20111107
  Receipt Date: 20110921
  Transmission Date: 20120403
  Serious: No
  Sender: FDA-Public Use
  Company Number: US-AMGEN-USASP2011029122

PATIENT
  Age: 61 Year
  Sex: Female

DRUGS (3)
  1. TREXALL [Concomitant]
     Dosage: 1 MG, QWK
     Dates: start: 20110301
  2. ENBREL [Suspect]
     Indication: PSORIATIC ARTHROPATHY
     Dosage: 50 MG, 2 TIMES/WK
     Dates: start: 20110523
  3. ENBREL [Suspect]
     Indication: PSORIASIS
     Dates: start: 20110501

REACTIONS (13)
  - GAIT DISTURBANCE [None]
  - INJECTION SITE HAEMATOMA [None]
  - OEDEMA PERIPHERAL [None]
  - SKIN LESION [None]
  - DRUG EFFECT DECREASED [None]
  - ARTHRALGIA [None]
  - MUSCULOSKELETAL PAIN [None]
  - NAIL RIDGING [None]
  - INJECTION SITE HAEMORRHAGE [None]
  - INJECTION SITE PAIN [None]
  - LETHARGY [None]
  - TOOTH DISORDER [None]
  - ONYCHOMYCOSIS [None]
